FAERS Safety Report 21517160 (Version 3)
Quarter: 2023Q2

REPORT INFORMATION
  Report Type: Other
  Country: CA (occurrence: CA)
  Receive Date: 20221028
  Receipt Date: 20230522
  Transmission Date: 20230722
  Serious: Yes (Other)
  Sender: FDA-Public Use
  Company Number: CA-002147023-NVSC2021CA219979

PATIENT
  Age: 26 Year
  Sex: Female

DRUGS (5)
  1. XOLAIR [Suspect]
     Active Substance: OMALIZUMAB
     Indication: Chronic spontaneous urticaria
     Dosage: 300 MG, EVERY 4 WEEKS
     Route: 058
     Dates: start: 20210603, end: 20211026
  2. XOLAIR [Suspect]
     Active Substance: OMALIZUMAB
     Dosage: 300 MG, EVERY 4 WEEKS
     Route: 058
     Dates: start: 20211026, end: 20211026
  3. XOLAIR [Suspect]
     Active Substance: OMALIZUMAB
     Dosage: 300 MG, EVERY 4 WEEKS
     Route: 065
     Dates: start: 20220627
  4. ATARAX [Concomitant]
     Active Substance: HYDROXYZINE HYDROCHLORIDE
     Indication: Product used for unknown indication
     Dosage: UNK
  5. PRUCALOPRIDE [Concomitant]
     Active Substance: PRUCALOPRIDE
     Indication: Product used for unknown indication
     Dosage: UNK

REACTIONS (23)
  - Anaphylactic reaction [Unknown]
  - Syncope [Unknown]
  - Throat irritation [Unknown]
  - Malaise [Unknown]
  - Symptom recurrence [Unknown]
  - Anxiety [Unknown]
  - Dyspnoea [Unknown]
  - Dyshidrotic eczema [Unknown]
  - Quality of life decreased [Unknown]
  - Back pain [Unknown]
  - Nausea [Unknown]
  - Hypersensitivity [Unknown]
  - Pharyngeal swelling [Unknown]
  - Asthenia [Unknown]
  - Fatigue [Unknown]
  - Eye pruritus [Unknown]
  - Bone pain [Unknown]
  - Lacrimation increased [Unknown]
  - Dizziness [Unknown]
  - Urticaria [Unknown]
  - Erythema [Unknown]
  - Pruritus [Unknown]
  - Oedema [Unknown]

NARRATIVE: CASE EVENT DATE: 20210922
